FAERS Safety Report 8403508-7 (Version None)
Quarter: 2012Q2

REPORT INFORMATION
  Report Type: 
  Country: None (occurrence: None)
  Receive Date: 20120601
  Receipt Date: 20120528
  Transmission Date: 20120825
  Serious: Yes (Hospitalization, Other)
  Sender: FDA-Public Use
  Company Number: GB-PFIZER INC-2012127823

PATIENT
  Age: 44 Year
  Sex: Male

DRUGS (1)
  1. VARENICLINE TARTRATE [Suspect]
     Dosage: 1 MG, 2X/DAY
     Route: 048

REACTIONS (6)
  - NEGATIVE THOUGHTS [None]
  - PALLOR [None]
  - INSOMNIA [None]
  - PANIC ATTACK [None]
  - CHEST PAIN [None]
  - PAIN IN EXTREMITY [None]
